FAERS Safety Report 25030827 (Version 1)
Quarter: 2025Q1

REPORT INFORMATION
  Report Type: Spontaneous
  Country: FR (occurrence: FR)
  Receive Date: 20250303
  Receipt Date: 20250303
  Transmission Date: 20250409
  Serious: Yes (Hospitalization, Other)
  Sender: CHEPLAPHARM
  Company Number: None

PATIENT
  Age: 34 Year
  Sex: Male

DRUGS (12)
  1. CLONAZEPAM [Suspect]
     Active Substance: CLONAZEPAM
     Route: 048
     Dates: start: 20240203
  2. CLONAZEPAM [Suspect]
     Active Substance: CLONAZEPAM
     Route: 048
  3. COCAINE [Suspect]
     Active Substance: COCAINE
     Route: 045
  4. LYRICA [Suspect]
     Active Substance: PREGABALIN
     Dosage: 300MG 1-0-1 ?DAILY DOSE: 900 MILLIGRAM
     Route: 048
  5. ALCOHOL [Suspect]
     Active Substance: ALCOHOL
  6. AKINETON [Concomitant]
     Active Substance: BIPERIDEN HYDROCHLORIDE
  7. ESOMEPRAZOLE [Concomitant]
     Active Substance: ESOMEPRAZOLE
     Dosage: 20MG 0-0-1 ?DAILY DOSE: 20 MILLIGRAM
  8. GAVISCON [Concomitant]
     Active Substance: ALUMINUM HYDROXIDE\MAGNESIUM CARBONATE
  9. PERICIAZINE [Concomitant]
     Active Substance: PERICIAZINE
  10. LOXAPINE [Concomitant]
     Active Substance: LOXAPINE
  11. VALIUM [Concomitant]
     Active Substance: DIAZEPAM
  12. SILDENAFIL [Concomitant]
     Active Substance: SILDENAFIL
     Dosage: 50MG : 1/D. ?DAILY DOSE: 50 MILLIGRAM

REACTIONS (5)
  - Drug withdrawal syndrome [Unknown]
  - Diabetes mellitus [Unknown]
  - Substance use disorder [Not Recovered/Not Resolved]
  - Hallucination, auditory [Not Recovered/Not Resolved]
  - Insomnia [Unknown]

NARRATIVE: CASE EVENT DATE: 20240114
